FAERS Safety Report 15433506 (Version 1)
Quarter: 2018Q3

REPORT INFORMATION
  Report Type: Spontaneous
  Country: US (occurrence: US)
  Receive Date: 20180927
  Receipt Date: 20180927
  Transmission Date: 20181010
  Serious: No
  Sender: FDA-Public Use
  Company Number: US-009507513-1809USA012558

PATIENT
  Sex: Female
  Weight: 51.7 kg

DRUGS (1)
  1. ZETIA [Suspect]
     Active Substance: EZETIMIBE
     Indication: CORONARY ARTERY DISEASE
     Dosage: 10 DF, QD
     Route: 048
     Dates: start: 20170728

REACTIONS (2)
  - Myalgia [Unknown]
  - Drug hypersensitivity [Unknown]
